FAERS Safety Report 7786385-7 (Version None)
Quarter: 2011Q3

REPORT INFORMATION
  Report Type: 
  Country: None (occurrence: None)
  Receive Date: 20110929
  Receipt Date: 20110927
  Transmission Date: 20111222
  Serious: Yes (Other)
  Sender: FDA-Public Use
  Company Number: PHHY2011CH82454

PATIENT
  Sex: Female

DRUGS (3)
  1. CLOZAPINE [Suspect]
     Dosage: UNK UKN, UNK
  2. BENZODIAZEPINES [Concomitant]
  3. CLOZAPINE [Suspect]
     Dosage: 550 MG, DAILY

REACTIONS (5)
  - FALL [None]
  - ANTIPSYCHOTIC DRUG LEVEL ABOVE THERAPEUTIC [None]
  - SOMNOLENCE [None]
  - AKINESIA [None]
  - OVERDOSE [None]
